FAERS Safety Report 9486967 (Version 3)
Quarter: 2013Q4

REPORT INFORMATION
  Report Type: Report from Study
  Country: AR (occurrence: AR)
  Receive Date: 20130829
  Receipt Date: 20131206
  Transmission Date: 20140711
  Serious: Yes (Death, Other)
  Sender: FDA-Public Use
  Company Number: AR-VIIV HEALTHCARE LIMITED-A1034254A

PATIENT
  Age: 21 Year
  Sex: Male
  Weight: 44 kg

DRUGS (9)
  1. DOLUTEGRAVIR [Suspect]
     Indication: HIV INFECTION
     Dosage: 50MG TWICE PER DAY
     Route: 048
     Dates: start: 20130623
  2. DARUNAVIR [Concomitant]
  3. TENOFOVIR [Concomitant]
  4. HIV TREATMENTS (UNSPECIFIED) [Concomitant]
  5. LAMIVUDINE-HIV [Concomitant]
  6. VALCYTE [Concomitant]
  7. BACTRIM FORTE [Concomitant]
  8. CENTRUM [Concomitant]
  9. VALGANCYCLOVIR [Concomitant]
     Indication: CYTOMEGALOVIRUS INFECTION

REACTIONS (3)
  - Encephalitis cytomegalovirus [Fatal]
  - Central nervous system mass [Fatal]
  - Pneumonia cytomegaloviral [Fatal]
